FAERS Safety Report 11771487 (Version 1)
Quarter: 2015Q4

REPORT INFORMATION
  Report Type: Spontaneous
  Country: US (occurrence: None)
  Receive Date: 20151123
  Receipt Date: 20151123
  Transmission Date: 20160304
  Serious: Yes (Other)
  Sender: FDA-Public Use
  Company Number: None

PATIENT
  Age: 34 Year
  Sex: Female
  Weight: 54.43 kg

DRUGS (2)
  1. EXCEDRIN MIGRAINE [Suspect]
     Active Substance: ACETAMINOPHEN\ASPIRIN\CAFFEINE
     Indication: MIGRAINE
     Dosage: 2 PILLS ?ONCE DAILY?TAKEN BY MOUTH
     Route: 048
     Dates: start: 20151109, end: 20151112
  2. YAZ [Concomitant]
     Active Substance: DROSPIRENONE\ETHINYL ESTRADIOL

REACTIONS (5)
  - Restlessness [None]
  - Anxiety [None]
  - Product quality issue [None]
  - Tremor [None]
  - Heart rate increased [None]

NARRATIVE: CASE EVENT DATE: 20151109
